FAERS Safety Report 9756771 (Version 2)
Quarter: 2013Q4

REPORT INFORMATION
  Report Type: Spontaneous
  Country: SK (occurrence: SK)
  Receive Date: 20131213
  Receipt Date: 20131224
  Transmission Date: 20140711
  Serious: Yes (Hospitalization)
  Sender: FDA-Public Use
  Company Number: SK-ELI_LILLY_AND_COMPANY-SK201312002539

PATIENT
  Age: 64 Year
  Sex: Male

DRUGS (6)
  1. ALIMTA [Suspect]
     Indication: LUNG ADENOCARCINOMA
     Dosage: 1000 MG, UNK
     Route: 042
     Dates: start: 20131015
  2. DEXAMETHASONE [Concomitant]
     Dosage: 8 MG, UNK
     Route: 042
  3. VITAMIN B12                        /00056201/ [Concomitant]
     Dosage: 1000 UG, UNK
     Route: 030
  4. ACIDUM FOLICUM [Concomitant]
     Dosage: 800 UG, UNK
  5. SYNTOPHYLLIN                       /00003701/ [Concomitant]
  6. PREDNISONE [Concomitant]
     Dosage: 20 MG, QD

REACTIONS (9)
  - Febrile neutropenia [Recovered/Resolved]
  - Thrombocytopenia [Recovered/Resolved]
  - Hepatorenal syndrome [Recovered/Resolved]
  - Thrombocytopenic purpura [Recovered/Resolved]
  - Asthenia [Recovered/Resolved]
  - Oral discomfort [Recovered/Resolved]
  - Gingival bleeding [Recovered/Resolved]
  - Dysgeusia [Recovered/Resolved]
  - Dermatitis allergic [Recovered/Resolved]
